FAERS Safety Report 16031433 (Version 1)
Quarter: 2019Q1

REPORT INFORMATION
  Report Type: Spontaneous
  Country: JP (occurrence: JP)
  Receive Date: 20190304
  Receipt Date: 20190304
  Transmission Date: 20190418
  Serious: Yes (Death, Other)
  Sender: FDA-Public Use
  Company Number: JP-BRISTOL-MYERS SQUIBB COMPANY-BMS-2019-022089

PATIENT
  Age: 43 Year
  Sex: Male
  Weight: 78.3 kg

DRUGS (1)
  1. NIVOLUMAB [Suspect]
     Active Substance: NIVOLUMAB
     Indication: ADENOCARCINOMA GASTRIC
     Route: 065

REACTIONS (4)
  - Drug-induced liver injury [Unknown]
  - Malignant neoplasm progression [Fatal]
  - Cytokine release syndrome [Unknown]
  - Cholangitis [Unknown]
